FAERS Safety Report 4764142-3 (Version None)
Quarter: 2005Q3

REPORT INFORMATION
  Report Type: 
  Country: None (occurrence: None)
  Receive Date: 20050906
  Receipt Date: 20050624
  Transmission Date: 20060218
  Serious: No
  Sender: FDA-Public Use
  Company Number: 2005-BP-10783BP

PATIENT
  Age: 82 Year
  Sex: Female

DRUGS (12)
  1. SPIRIVA [Suspect]
     Indication: BRONCHITIS CHRONIC
     Dosage: 18 MCG (18 MCG, QD), IN
     Route: 055
     Dates: start: 20050101
  2. LEVOXYL [Concomitant]
  3. LASIX [Concomitant]
  4. MEPROBAMATE [Concomitant]
  5. ATENOLOL [Concomitant]
  6. ACETYLSALICYLIC ACID SRT [Concomitant]
  7. PEPCID [Concomitant]
  8. FLEXERIL [Concomitant]
  9. TYLENOL WITH CODEINE (PANADEINE CO) [Concomitant]
  10. ZOLOFT [Concomitant]
  11. OXYGEN (OXYGEN) [Concomitant]
  12. PROCRIT [Concomitant]

REACTIONS (1)
  - ALOPECIA [None]
